FAERS Safety Report 7557394-8 (Version None)
Quarter: 2011Q2

REPORT INFORMATION
  Report Type: 
  Country: None (occurrence: None)
  Receive Date: 20110616
  Receipt Date: 20110616
  Transmission Date: 20111010
  Serious: Yes (Hospitalization)
  Sender: FDA-Public Use
  Company Number: None

PATIENT
  Age: 84 Year
  Sex: Male
  Weight: 73 kg

DRUGS (4)
  1. FUROSEMIDE [Suspect]
     Indication: HYPERTENSION
     Dosage: 40 MG TID PO
     Route: 048
  2. AMLODIPINE BESYLATE AND BENAZEPRIL HCL [Concomitant]
  3. DOXAZOSIN MESYLATE [Concomitant]
  4. MULTI-VITAMIN [Concomitant]

REACTIONS (6)
  - PRURITUS [None]
  - RENAL FAILURE ACUTE [None]
  - ABDOMINAL DISTENSION [None]
  - SKIN EXFOLIATION [None]
  - TUBULOINTERSTITIAL NEPHRITIS [None]
  - BLISTER [None]
